FAERS Safety Report 11792233 (Version 1)
Quarter: 2015Q4

REPORT INFORMATION
  Report Type: Other
  Country: TW (occurrence: TW)
  Receive Date: 20151201
  Receipt Date: 20151201
  Transmission Date: 20160305
  Serious: Yes (Hospitalization)
  Sender: FDA-Public Use
  Company Number: TW-PURDUE-GBR-2015-0032416

PATIENT
  Age: 41 Year
  Sex: Male

DRUGS (3)
  1. VALPROAT [Concomitant]
     Active Substance: VALPROATE SODIUM
     Dosage: 500 MG, Q12H
  2. NON-PMN MORPHINE SULFATE [Suspect]
     Active Substance: MORPHINE SULFATE
     Indication: PAIN
     Dosage: SEE TEXT
     Route: 042
  3. KETOROLAC [Concomitant]
     Active Substance: KETOROLAC\KETOROLAC TROMETHAMINE
     Indication: PAIN
     Dosage: SEE TEXT
     Route: 042

REACTIONS (1)
  - Delirium tremens [Recovered/Resolved]
